FAERS Safety Report 7296452-2 (Version None)
Quarter: 2011Q1

REPORT INFORMATION
  Report Type: 
  Country: None (occurrence: None)
  Receive Date: 20110216
  Receipt Date: 20110204
  Transmission Date: 20110831
  Serious: Yes (Hospitalization)
  Sender: FDA-Public Use
  Company Number: JP-ROCHE-749450

PATIENT
  Sex: Female
  Weight: 65 kg

DRUGS (11)
  1. MYSLEE [Concomitant]
     Route: 048
     Dates: start: 20100831
  2. LOXONIN [Concomitant]
     Route: 048
     Dates: start: 20100831
  3. LEVEMIR [Concomitant]
     Route: 058
     Dates: start: 20101209
  4. LAXOBERON [Concomitant]
     Dosage: FORM: PERORAL LIQUID PREPARATION
     Route: 048
  5. GASTER D [Concomitant]
     Route: 048
     Dates: start: 20100831
  6. KETOPROFEN [Concomitant]
     Dosage: FORM: TAPE
     Route: 062
     Dates: start: 20101018
  7. PYDOXAL [Concomitant]
     Route: 048
     Dates: start: 20101019
  8. NOVORAPID [Concomitant]
     Dosage: NOVORAPID MIX (INSULIN ASPARTATE (GENETICAL RECOMBINATION))
     Route: 058
     Dates: start: 20101208
  9. XELODA [Suspect]
     Indication: BREAST CANCER METASTATIC
     Dosage: XELODA 300,
     Route: 048
     Dates: start: 20100916
  10. ALOSENN [Concomitant]
     Dosage: FORM: GRANULATED POWDER
     Route: 048
     Dates: start: 20101209
  11. URSO 250 [Concomitant]
     Route: 048
     Dates: start: 20051212

REACTIONS (5)
  - HYPOAESTHESIA [None]
  - DIABETES MELLITUS [None]
  - STOMATITIS [None]
  - GENITAL HAEMORRHAGE [None]
  - NAUSEA [None]
